FAERS Safety Report 7739269-4 (Version None)
Quarter: 2011Q3

REPORT INFORMATION
  Report Type: 
  Country: None (occurrence: None)
  Receive Date: 20110909
  Receipt Date: 20110830
  Transmission Date: 20111222
  Serious: Yes (Hospitalization)
  Sender: FDA-Public Use
  Company Number: JP-JNJFOC-20110201692

PATIENT
  Sex: Female
  Weight: 47.4 kg

DRUGS (5)
  1. MOHRUS TAPE [Concomitant]
     Indication: BACK PAIN
     Route: 062
     Dates: end: 20110107
  2. RAMELTEON [Concomitant]
     Indication: OVARIAN CANCER RECURRENT
     Route: 048
     Dates: start: 20110105, end: 20110107
  3. APHTASOLON [Concomitant]
     Indication: STOMATITIS
     Route: 049
     Dates: end: 20110107
  4. GRANISETRON [Concomitant]
     Indication: OVARIAN CANCER
     Route: 041
     Dates: end: 20110107
  5. DOXIL [Suspect]
     Indication: OVARIAN CANCER RECURRENT
     Dosage: 19 CYCLES, TOTAL DOSE 1330 MG
     Route: 042
     Dates: start: 20090101, end: 20110101

REACTIONS (2)
  - ARRHYTHMIA [None]
  - MYOCARDIAL INFARCTION [None]
